FAERS Safety Report 14361587 (Version 2)
Quarter: 2018Q1

REPORT INFORMATION
  Report Type: Spontaneous
  Country: US (occurrence: US)
  Receive Date: 20180108
  Receipt Date: 20180301
  Transmission Date: 20180509
  Serious: Yes (Other)
  Sender: FDA-Public Use
  Company Number: US-009507513-1801USA001615

PATIENT
  Age: 62 Year
  Sex: Male
  Weight: 73.92 kg

DRUGS (2)
  1. KEYTRUDA [Suspect]
     Active Substance: PEMBROLIZUMAB
     Indication: METASTATIC MALIGNANT MELANOMA
     Dosage: 2 MG/KG EVERY 21 DAYS (17 DOSES)
     Route: 042
     Dates: start: 20141202, end: 20151103
  2. KEYTRUDA [Suspect]
     Active Substance: PEMBROLIZUMAB
     Dosage: 2 MG/KG EVERY 21 DAYS (7 DOSES)
     Route: 042
     Dates: start: 20160922, end: 20170203

REACTIONS (21)
  - Pneumonitis [Recovered/Resolved]
  - Retroperitoneal lymphadenopathy [Recovered/Resolved]
  - Bladder dilatation [Unknown]
  - Coronary artery disease [Unknown]
  - Aortic arteriosclerosis [Unknown]
  - Prostatomegaly [Unknown]
  - Osteoarthritis [Unknown]
  - Spondylolisthesis [Unknown]
  - Renal neoplasm [Unknown]
  - Umbilical hernia [Unknown]
  - Dry mouth [Unknown]
  - Arteriosclerosis [Unknown]
  - Scoliosis [Unknown]
  - Malignant neoplasm progression [Unknown]
  - Spinal osteoarthritis [Unknown]
  - Arteriosclerosis coronary artery [Unknown]
  - Renal cyst [Unknown]
  - Prostatic calcification [Unknown]
  - Pneumonitis [Recovered/Resolved]
  - Bladder hypertrophy [Unknown]
  - Cholelithiasis [Unknown]

NARRATIVE: CASE EVENT DATE: 2015
